FAERS Safety Report 10348114 (Version 1)
Quarter: 2014Q3

REPORT INFORMATION
  Report Type: Spontaneous
  Country: GR (occurrence: GR)
  Receive Date: 20140729
  Receipt Date: 20140729
  Transmission Date: 20150326
  Serious: Yes (Hospitalization, Other)
  Sender: FDA-Public Use
  Company Number: PHHY2014GR091950

PATIENT
  Age: 34 Year
  Sex: Male

DRUGS (7)
  1. ALCOHOL. [Concomitant]
     Active Substance: ALCOHOL
  2. SERTRALINE [Suspect]
     Active Substance: SERTRALINE HYDROCHLORIDE
     Dosage: 100 MG, BID
  3. CANNABIS [Concomitant]
     Active Substance: CANNABIS SATIVA SUBSP. INDICA TOP
  4. HALOPERIDOL. [Interacting]
     Active Substance: HALOPERIDOL
     Dosage: 5 MG, UNK
  5. BIPERIDEN [Interacting]
     Active Substance: BIPERIDEN
     Dosage: 5 MG, UNK
     Route: 030
  6. CHLORPROMAZINE [Interacting]
     Active Substance: CHLORPROMAZINE
     Dosage: 25 MG, UNK
     Route: 030
  7. MIRTAZAPINE. [Concomitant]
     Active Substance: MIRTAZAPINE

REACTIONS (17)
  - Substance-induced psychotic disorder [Unknown]
  - Psychomotor hyperactivity [Unknown]
  - Fear [Unknown]
  - Disorientation [Unknown]
  - Insomnia [Unknown]
  - Delirium [Recovered/Resolved]
  - Overdose [Unknown]
  - Hallucination, auditory [Unknown]
  - Drug interaction [Unknown]
  - Abnormal behaviour [Unknown]
  - Aspartate aminotransferase increased [Recovered/Resolved]
  - Soliloquy [Unknown]
  - Extrapyramidal disorder [Unknown]
  - Thinking abnormal [Unknown]
  - Delusion [Unknown]
  - Restlessness [Unknown]
  - Hallucinations, mixed [Unknown]
